FAERS Safety Report 25716887 (Version 1)
Quarter: 2025Q3

REPORT INFORMATION
  Report Type: Spontaneous
  Country: US (occurrence: US)
  Receive Date: 20250822
  Receipt Date: 20250822
  Transmission Date: 20251021
  Serious: Yes (Hospitalization, Other)
  Sender: NOVARTIS
  Company Number: US-002147023-NVSC2025US127233

PATIENT

DRUGS (1)
  1. PIQRAY [Suspect]
     Active Substance: ALPELISIB
     Indication: Product used for unknown indication
     Route: 065

REACTIONS (5)
  - Renal failure [Unknown]
  - Diarrhoea [Unknown]
  - Ageusia [Unknown]
  - Weight decreased [Unknown]
  - Off label use [Unknown]
